FAERS Safety Report 14542861 (Version 2)
Quarter: 2018Q1

REPORT INFORMATION
  Report Type: Spontaneous
  Country: US (occurrence: US)
  Receive Date: 20180216
  Receipt Date: 20180326
  Transmission Date: 20180509
  Serious: No
  Sender: FDA-Public Use
  Company Number: US-GLAXOSMITHKLINE-US2018025119

PATIENT
  Age: 64 Year
  Sex: Female
  Weight: 59.41 kg

DRUGS (1)
  1. TANZEUM [Suspect]
     Active Substance: ALBIGLUTIDE
     Indication: TYPE 2 DIABETES MELLITUS
     Dosage: 50 MG, WE
     Route: 058
     Dates: start: 20150318

REACTIONS (3)
  - Underdose [Unknown]
  - Wrong technique in device usage process [Unknown]
  - Medication error [Unknown]

NARRATIVE: CASE EVENT DATE: 20180212
